FAERS Safety Report 7739838-1 (Version None)
Quarter: 2011Q3

REPORT INFORMATION
  Report Type: 
  Country: None (occurrence: None)
  Receive Date: 20110906
  Receipt Date: 20110822
  Transmission Date: 20111222
  Serious: Yes (Hospitalization)
  Sender: FDA-Public Use
  Company Number: 2011MA012354

PATIENT
  Age: 69 Year
  Sex: Female

DRUGS (23)
  1. DARVOCET-N 50 [Concomitant]
  2. CARDURA [Concomitant]
  3. RANITIDINE [Concomitant]
  4. PRILOSEC [Concomitant]
  5. HYDROXYZINE [Concomitant]
  6. HUMALOG [Concomitant]
  7. ASPIRIN [Concomitant]
  8. LIPITOR [Concomitant]
  9. COENZYME Q10 [Concomitant]
  10. ACTOS [Concomitant]
  11. VERPAMIL HCL [Concomitant]
  12. SUCRALFATE [Concomitant]
  13. HYDROCHLOROTHIAZIDE [Concomitant]
  14. METFORMIN HYDROCHLORIDE [Concomitant]
  15. ATENOLOL [Concomitant]
  16. PAROXETINE HCL [Concomitant]
  17. ALPRAZOLAM [Concomitant]
  18. SYNTHROID [Concomitant]
  19. DIGOXIN [Suspect]
     Indication: ATRIAL FIBRILLATION
     Dates: end: 20080510
  20. LANTUS [Concomitant]
  21. LISINOPRIL [Concomitant]
  22. ASACOL [Concomitant]
  23. PANTOPRAZOLE [Concomitant]

REACTIONS (14)
  - HYPOTENSION [None]
  - HAEMATOCHEZIA [None]
  - HYPERTENSION [None]
  - FAECES DISCOLOURED [None]
  - DIZZINESS [None]
  - BRADYCARDIA [None]
  - ABDOMINAL PAIN [None]
  - ASTHENIA [None]
  - FATIGUE [None]
  - SICK SINUS SYNDROME [None]
  - ARRHYTHMIA [None]
  - ABDOMINAL PAIN UPPER [None]
  - RECTAL HAEMORRHAGE [None]
  - DIARRHOEA [None]
